FAERS Safety Report 23375292 (Version 1)
Quarter: 2024Q1

REPORT INFORMATION
  Report Type: Other
  Country: None (occurrence: US)
  Receive Date: 20240106
  Receipt Date: 20240106
  Transmission Date: 20240410
  Serious: Yes (Death)
  Sender: FDA-Public Use
  Company Number: US-Coloplast A/S-2150229

PATIENT
  Age: 2 Day

DRUGS (1)
  1. SWEEN 24 [Suspect]
     Active Substance: DIMETHICONE
     Indication: Skin abrasion
     Route: 061

REACTIONS (1)
  - Pulmonary haemorrhage [Fatal]
